FAERS Safety Report 7073789-3 (Version None)
Quarter: 2010Q4

REPORT INFORMATION
  Report Type: 
  Country: None (occurrence: None)
  Receive Date: 20101029
  Receipt Date: 20100914
  Transmission Date: 20110411
  Serious: No
  Sender: FDA-Public Use
  Company Number: A0876129A

PATIENT
  Age: 63 Year
  Sex: Female

DRUGS (8)
  1. ADVAIR DISKUS 100/50 [Suspect]
     Dosage: 1PUFF TWICE PER DAY
     Route: 055
     Dates: start: 20100225
  2. XOPENEX [Concomitant]
  3. ALEVE (CAPLET) [Concomitant]
  4. TRAMADOL [Concomitant]
  5. GLUCOSAMINE + CHONDROITIN [Concomitant]
  6. GRAPE DERIVATIVES (NUTRITONAL SUPPLEMENT) [Concomitant]
  7. PRASTERONE [Concomitant]
  8. CHLOR-TRIMETON [Concomitant]

REACTIONS (2)
  - DYSPNOEA [None]
  - PRODUCT QUALITY ISSUE [None]
